FAERS Safety Report 17501947 (Version 1)
Quarter: 2020Q1

REPORT INFORMATION
  Report Type: Spontaneous
  Country: US (occurrence: US)
  Receive Date: 20200305
  Receipt Date: 20200305
  Transmission Date: 20200409
  Serious: Yes (Hospitalization, Other)
  Sender: FDA-Public Use
  Company Number: None

PATIENT
  Age: 12 Year
  Sex: Female
  Weight: 76.5 kg

DRUGS (3)
  1. SINGULAIR GENERIC [Suspect]
     Active Substance: MONTELUKAST SODIUM
     Indication: HYPERSENSITIVITY
     Dosage: ?          QUANTITY:1 TEASPOON(S);?
     Route: 048
     Dates: start: 20070910, end: 20200305
  2. SEROQUEL [Concomitant]
     Active Substance: QUETIAPINE FUMARATE
  3. ZOLOFT [Concomitant]
     Active Substance: SERTRALINE HYDROCHLORIDE

REACTIONS (14)
  - Depression [None]
  - Vascular rupture [None]
  - Blister [None]
  - Social avoidant behaviour [None]
  - Suicidal ideation [None]
  - Educational problem [None]
  - Thinking abnormal [None]
  - Abnormal behaviour [None]
  - Personality change [None]
  - Contusion [None]
  - Antisocial behaviour [None]
  - Intentional self-injury [None]
  - Depersonalisation/derealisation disorder [None]
  - Panic attack [None]

NARRATIVE: CASE EVENT DATE: 20180520
